FAERS Safety Report 11792744 (Version 1)
Quarter: 2015Q4

REPORT INFORMATION
  Report Type: Spontaneous
  Country: US (occurrence: None)
  Receive Date: 20151130
  Receipt Date: 20151130
  Transmission Date: 20160305
  Serious: Yes (Death, Hospitalization)
  Sender: FDA-Public Use
  Company Number: 2015US-106835

PATIENT
  Age: 62 Year
  Sex: Male

DRUGS (1)
  1. PREDNISONE (PREDNISONE) UNKNOWN [Suspect]
     Active Substance: PREDNISONE
     Indication: CHRONIC OBSTRUCTIVE PULMONARY DISEASE

REACTIONS (8)
  - Blood glucose increased [None]
  - Fungal infection [None]
  - Acute kidney injury [None]
  - Respiratory failure [None]
  - Multi-organ failure [None]
  - Self-medication [None]
  - Lung infection [None]
  - Sepsis [None]
